FAERS Safety Report 5451673-6 (Version None)
Quarter: 2007Q3

REPORT INFORMATION
  Report Type: 
  Country: None (occurrence: None)
  Receive Date: 20070803
  Receipt Date: 20070502
  Transmission Date: 20080115
  Serious: Yes (Other)
  Sender: FDA-Public Use
  Company Number: 36624

PATIENT
  Sex: Male
  Weight: 85 kg

DRUGS (4)
  1. PROPOFOL [Suspect]
     Indication: MYCOBACTERIA TEST
     Dosage: 150 MG/IV
     Route: 042
     Dates: start: 20070425
  2. PROPOFOL [Suspect]
  3. PROPOFOL [Suspect]
     Indication: MYCOBACTERIA TEST
     Dosage: 150MG/IV
     Route: 042
     Dates: start: 20070425
  4. LIDOCAINE [Concomitant]

REACTIONS (3)
  - CHILLS [None]
  - PAIN [None]
  - PYREXIA [None]
